FAERS Safety Report 13861673 (Version 1)
Quarter: 2017Q3

REPORT INFORMATION
  Report Type: Report from Study
  Country: US (occurrence: US)
  Receive Date: 20170811
  Receipt Date: 20170811
  Transmission Date: 20171127
  Serious: Yes (Hospitalization)
  Sender: FDA-Public Use
  Company Number: US-VIFOR (INTERNATIONAL) INC.-VIT-2017-03187

PATIENT
  Sex: Male
  Weight: 121.1 kg

DRUGS (1)
  1. VELTASSA [Suspect]
     Active Substance: PATIROMER
     Indication: HYPERKALAEMIA
     Route: 048
     Dates: start: 20170118, end: 201703

REACTIONS (14)
  - Renal impairment [Recovered/Resolved]
  - Gastrointestinal disorder [Recovered/Resolved]
  - Blood insulin abnormal [Unknown]
  - Lower limb fracture [Unknown]
  - Diabetes mellitus [Recovered/Resolved]
  - Bedridden [Unknown]
  - Product physical issue [Unknown]
  - Depression [Unknown]
  - Impaired driving ability [Unknown]
  - Arthralgia [Recovered/Resolved]
  - Constipation [Recovered/Resolved]
  - Gait disturbance [Unknown]
  - Choking [Unknown]
  - Fatigue [Unknown]

NARRATIVE: CASE EVENT DATE: 2017
